FAERS Safety Report 8947485 (Version 4)
Quarter: 2013Q1

REPORT INFORMATION
  Report Type: Spontaneous
  Country: CO (occurrence: CO)
  Receive Date: 20121204
  Receipt Date: 20130206
  Transmission Date: 20140127
  Serious: Yes (Hospitalization)
  Sender: FDA-Public Use
  Company Number: CO-ROCHE-1163871

PATIENT
  Age: 54 Year
  Sex: Male
  Weight: 60 kg

DRUGS (3)
  1. LUCENTIS [Suspect]
     Indication: EYE DISORDER
     Dosage: 1 AMPOULE MONTHLY
     Route: 050
     Dates: start: 20120813
  2. LOSARTAN [Concomitant]
  3. INSULIN [Concomitant]

REACTIONS (3)
  - Inflammation [Recovered/Resolved]
  - Fluid retention [Recovering/Resolving]
  - Renal disorder [Unknown]
